FAERS Safety Report 11302829 (Version 1)
Quarter: 2015Q3

REPORT INFORMATION
  Report Type: Spontaneous
  Country: US (occurrence: US)
  Receive Date: 20150723
  Receipt Date: 20150723
  Transmission Date: 20151125
  Serious: No
  Sender: FDA-Public Use
  Company Number: US-BAYER-2015-384755

PATIENT
  Age: 77 Year
  Sex: Female
  Weight: 90.7 kg

DRUGS (4)
  1. ALEVE [Suspect]
     Active Substance: NAPROXEN SODIUM
     Indication: PAIN IN EXTREMITY
     Dosage: 1 DF, ONCE
     Route: 048
     Dates: start: 20150720, end: 20150720
  2. HYDROCORTISONE. [Concomitant]
     Active Substance: HYDROCORTISONE
  3. FLORINEF ACETATE [Concomitant]
     Active Substance: FLUDROCORTISONE ACETATE
  4. CALCIUM [Concomitant]
     Active Substance: CALCIUM

REACTIONS (1)
  - Constipation [Unknown]

NARRATIVE: CASE EVENT DATE: 20150720
